FAERS Safety Report 11828878 (Version 3)
Quarter: 2015Q4

REPORT INFORMATION
  Report Type: Spontaneous
  Country: US (occurrence: US)
  Receive Date: 20151211
  Receipt Date: 20151222
  Transmission Date: 20160305
  Serious: Yes (Other)
  Sender: FDA-Public Use
  Company Number: US-LUNDBECK-DKLU2007523

PATIENT
  Age: 25 Year
  Sex: Female

DRUGS (10)
  1. NORTHERA [Suspect]
     Active Substance: DROXIDOPA
     Indication: LOSS OF CONSCIOUSNESS
     Route: 048
     Dates: end: 20151215
  2. OTHER UN-NAMED MEDICATIONS [Concomitant]
     Indication: BIPOLAR DISORDER
     Route: 065
  3. OTHER UN-NAMED MEDICATIONS [Concomitant]
     Indication: DEPRESSION
  4. OTHER UN-NAMED MEDICATIONS [Concomitant]
     Indication: ANXIETY
  5. NORTHERA [Suspect]
     Active Substance: DROXIDOPA
     Indication: ORTHOSTATIC HYPOTENSION
     Route: 048
     Dates: start: 20151202
  6. NORTHERA [Suspect]
     Active Substance: DROXIDOPA
     Indication: HYPOTENSION
     Route: 048
     Dates: start: 20151202
  7. MIDODRINE [Suspect]
     Active Substance: MIDODRINE
     Indication: LOSS OF CONSCIOUSNESS
  8. FLORINEF ACETATE [Concomitant]
     Active Substance: FLUDROCORTISONE ACETATE
     Indication: PRODUCT USED FOR UNKNOWN INDICATION
     Route: 065
     Dates: end: 20151217
  9. NORTHERA [Suspect]
     Active Substance: DROXIDOPA
     Indication: SYNCOPE
  10. MIDODRINE [Suspect]
     Active Substance: MIDODRINE
     Indication: SYNCOPE
     Route: 065

REACTIONS (5)
  - Loss of consciousness [Not Recovered/Not Resolved]
  - Burning sensation [Recovered/Resolved]
  - Vomiting [Recovered/Resolved]
  - Malaise [Recovered/Resolved]
  - Incorrect dosage administered [Recovered/Resolved]

NARRATIVE: CASE EVENT DATE: 20151202
